FAERS Safety Report 14314163 (Version 1)
Quarter: 2017Q4

REPORT INFORMATION
  Report Type: Spontaneous
  Country: BR (occurrence: BR)
  Receive Date: 20171221
  Receipt Date: 20171221
  Transmission Date: 20180321
  Serious: Yes (Other)
  Sender: FDA-Public Use
  Company Number: BR-BAYER-2017-243758

PATIENT
  Weight: 1.7 kg

DRUGS (1)
  1. ACETYLSALICYLIC ACID({=100 MG) [Suspect]
     Active Substance: ASPIRIN
     Route: 064

REACTIONS (5)
  - Premature baby [None]
  - Foetal exposure during pregnancy [None]
  - Prader-Willi syndrome [None]
  - Foetal growth restriction [None]
  - Low birth weight baby [None]
